FAERS Safety Report 16440531 (Version 2)
Quarter: 2020Q3

REPORT INFORMATION
  Report Type: Spontaneous
  Country: CN (occurrence: CN)
  Receive Date: 20190617
  Receipt Date: 20200804
  Transmission Date: 20201102
  Serious: Yes (Life-Threatening, Hospitalization)
  Sender: FDA-Public Use
  Company Number: CN-TAKEDA-2019TUS038187

PATIENT
  Age: 76 Year
  Sex: Male
  Weight: 77 kg

DRUGS (10)
  1. DARATUMUMAB [Suspect]
     Active Substance: DARATUMUMAB
     Indication: PLASMA CELL MYELOMA
     Dosage: 1232 MILLIGRAM
     Route: 042
     Dates: start: 20190524, end: 20190531
  2. MELPHALAN. [Suspect]
     Active Substance: MELPHALAN
     Indication: PLASMA CELL MYELOMA
     Dosage: 18 MILLIGRAM
     Route: 048
     Dates: start: 20190524, end: 20190527
  3. CLOPIDOGREL HYDROGEN SULFATE [Concomitant]
     Active Substance: CLOPIDOGREL BISULFATE
     Indication: HYPERTENSION
     Dosage: UNK, BID
     Route: 048
     Dates: start: 20190506
  4. ISOSORBIDE MONONITRATE. [Concomitant]
     Active Substance: ISOSORBIDE MONONITRATE
     Indication: HYPERTENSION
     Dosage: UNK, TID
     Route: 048
     Dates: start: 20190506
  5. VELCADE [Suspect]
     Active Substance: BORTEZOMIB
     Indication: PLASMA CELL MYELOMA
     Dosage: 2.475 MILLIGRAM
     Route: 058
     Dates: start: 20190524, end: 20190603
  6. PRAVASTATIN SODIUM. [Concomitant]
     Active Substance: PRAVASTATIN SODIUM
     Indication: HYPERTENSION
     Dosage: UNK, QD
     Route: 048
     Dates: start: 20190506
  7. FOLIC ACID. [Concomitant]
     Active Substance: FOLIC ACID
     Indication: HYPERTENSION
     Dosage: UNK, QD
     Route: 048
     Dates: start: 20190506
  8. LOSARTAN POTASSIUM AND HYDROCHLOROTHIAZIDE [Concomitant]
     Active Substance: HYDROCHLOROTHIAZIDE\LOSARTAN POTASSIUM
     Indication: HYPERTENSION
     Dosage: UNK, QD
     Route: 048
     Dates: start: 20190406
  9. PREDNISONE. [Suspect]
     Active Substance: PREDNISONE
     Indication: PLASMA CELL MYELOMA
     Dosage: 115 MILLIGRAM
     Route: 048
     Dates: start: 20190525, end: 20190527
  10. GABAPENTIN. [Concomitant]
     Active Substance: GABAPENTIN
     Indication: HYPERTENSION
     Dosage: 300 MILLIGRAM, QD
     Route: 048
     Dates: start: 20190603, end: 20190604

REACTIONS (13)
  - Pneumonia [Not Recovered/Not Resolved]
  - Pollakiuria [Unknown]
  - Back pain [Recovered/Resolved]
  - Productive cough [Recovering/Resolving]
  - Pyrexia [Recovered/Resolved]
  - Diarrhoea [Unknown]
  - Fatigue [Unknown]
  - Micturition urgency [Unknown]
  - Thrombocytopenia [Recovered/Resolved]
  - Unevaluable event [Not Recovered/Not Resolved]
  - Tonsillar hypertrophy [Unknown]
  - Decreased appetite [Recovering/Resolving]
  - Dysuria [Unknown]

NARRATIVE: CASE EVENT DATE: 20190603
